FAERS Safety Report 6373660-6 (Version None)
Quarter: 2009Q3

REPORT INFORMATION
  Report Type: 
  Country: None (occurrence: None)
  Receive Date: 20090924
  Receipt Date: 20090923
  Transmission Date: 20100115
  Serious: No
  Sender: FDA-Public Use
  Company Number: US-ROXANE LABORATORIES, INC.-2009-RO-00737RO

PATIENT
  Sex: Male

DRUGS (11)
  1. CALCIUM ACETATE [Suspect]
     Indication: UNEVALUABLE EVENT
     Dosage: 6003 MG
     Route: 048
  2. FOSRENOL [Concomitant]
  3. INSULIN [Concomitant]
  4. MULTI-VITAMIN [Concomitant]
  5. DIAVAN [Concomitant]
  6. EPOGEN [Concomitant]
  7. METOPROLOL TARTRATE [Concomitant]
     Dosage: 100 MG
  8. NORVASC [Concomitant]
     Dosage: 5 MG
  9. SEROQUEL [Concomitant]
  10. SIMVASTATIN [Concomitant]
     Dosage: 40 MG
  11. ZYRTEC [Concomitant]

REACTIONS (1)
  - MEDICATION RESIDUE [None]
